FAERS Safety Report 17223974 (Version 3)
Quarter: 2020Q1

REPORT INFORMATION
  Report Type: Spontaneous
  Country: US (occurrence: US)
  Receive Date: 20200102
  Receipt Date: 20200317
  Transmission Date: 20200409
  Serious: Yes (Other)
  Sender: FDA-Public Use
  Company Number: US-GLAXOSMITHKLINE-US2019GSK238053

PATIENT
  Sex: Female

DRUGS (4)
  1. OMEPRAZOLE. [Suspect]
     Active Substance: OMEPRAZOLE
     Indication: PRODUCT USED FOR UNKNOWN INDICATION
     Dosage: 20 MG
     Route: 048
  2. OMEPRAZOLE. [Suspect]
     Active Substance: OMEPRAZOLE
     Indication: GASTROOESOPHAGEAL REFLUX DISEASE
     Dosage: 20 MG, QD
     Route: 048
     Dates: start: 2007, end: 2010
  3. PREVACID [Suspect]
     Active Substance: LANSOPRAZOLE
     Indication: GASTROOESOPHAGEAL REFLUX DISEASE
     Dosage: 30 MG, QD
     Route: 065
     Dates: start: 2003, end: 2010
  4. PREVACID [Suspect]
     Active Substance: LANSOPRAZOLE
     Indication: GASTROOESOPHAGEAL REFLUX DISEASE
     Dosage: UNK
     Route: 065
     Dates: start: 2010

REACTIONS (22)
  - Renal cyst [Unknown]
  - Nephrogenic anaemia [Unknown]
  - Haematuria [Unknown]
  - Renal colic [Unknown]
  - Nephrolithiasis [Unknown]
  - Urine odour abnormal [Unknown]
  - Ureterolithiasis [Unknown]
  - Acute kidney injury [Not Recovered/Not Resolved]
  - Renal failure [Unknown]
  - Tubulointerstitial nephritis [Not Recovered/Not Resolved]
  - Pollakiuria [Unknown]
  - Nephropathy [Unknown]
  - Renal atrophy [Unknown]
  - Nephropathy toxic [Unknown]
  - Chronic kidney disease [Unknown]
  - Subacute kidney injury [Unknown]
  - Nephritis [Unknown]
  - Incontinence [Unknown]
  - Proteinuria [Unknown]
  - Urinary tract infection [Unknown]
  - Renal impairment [Unknown]
  - Glomerulonephritis acute [Unknown]
